FAERS Safety Report 10512416 (Version 1)
Quarter: 2014Q4

REPORT INFORMATION
  Report Type: Spontaneous
  Country: BR (occurrence: BR)
  Receive Date: 20141010
  Receipt Date: 20141010
  Transmission Date: 20150528
  Serious: Yes (Life-Threatening, Other)
  Sender: FDA-Public Use
  Company Number: BR-ASTRAZENECA-2014SE75865

PATIENT
  Age: 19 Year
  Sex: Female
  Weight: 50 kg

DRUGS (2)
  1. SEROQUEL [Suspect]
     Active Substance: QUETIAPINE FUMARATE
     Indication: DEPRESSION
     Dosage: TOOK 15 TABLETS OF SEROQUEL
     Route: 048
     Dates: start: 2014
  2. SEROQUEL [Suspect]
     Active Substance: QUETIAPINE FUMARATE
     Indication: DEPRESSION
     Route: 048
     Dates: start: 2013

REACTIONS (4)
  - Suicide attempt [Recovered/Resolved]
  - Somnolence [Unknown]
  - Overdose [Unknown]
  - Tremor [Unknown]

NARRATIVE: CASE EVENT DATE: 2014
